FAERS Safety Report 13778669 (Version 4)
Quarter: 2017Q3

REPORT INFORMATION
  Report Type: Spontaneous
  Country: US (occurrence: US)
  Receive Date: 20170721
  Receipt Date: 20170807
  Transmission Date: 20171127
  Serious: No
  Sender: FDA-Public Use
  Company Number: US-ACTELION-A-US2017-157011

PATIENT
  Age: 28 Year
  Sex: Male

DRUGS (2)
  1. VALCHLOR [Suspect]
     Active Substance: MECHLORETHAMINE
     Dosage: UNK
     Route: 061
     Dates: start: 20170727
  2. VALCHLOR [Suspect]
     Active Substance: MECHLORETHAMINE
     Indication: MYCOSIS FUNGOIDES
     Dosage: UNK
     Route: 061
     Dates: start: 20170613, end: 20170726

REACTIONS (7)
  - Rash papular [Unknown]
  - Skin hyperpigmentation [Unknown]
  - Erythema [Unknown]
  - Blister [Unknown]
  - Skin reaction [Unknown]
  - Application site infection [Unknown]
  - Pruritus [Unknown]

NARRATIVE: CASE EVENT DATE: 20170728
